FAERS Safety Report 4832974-9 (Version None)
Quarter: 2005Q4

REPORT INFORMATION
  Report Type: 
  Country: None (occurrence: None)
  Receive Date: 20051117
  Receipt Date: 20051108
  Transmission Date: 20060501
  Serious: Yes (Hospitalization, Other)
  Sender: FDA-Public Use
  Company Number: US_0511123774

PATIENT
  Sex: Female
  Weight: 48 kg

DRUGS (3)
  1. FORTEO [Suspect]
     Indication: OSTEOPOROSIS
     Dosage: 20 UG DAY
     Dates: start: 20040801, end: 20050901
  2. LIPITOR [Concomitant]
  3. UNSPECIFIED SSRI [Concomitant]

REACTIONS (1)
  - LUNG NEOPLASM MALIGNANT [None]
